FAERS Safety Report 9641874 (Version 2)
Quarter: 2013Q4

REPORT INFORMATION
  Report Type: Spontaneous
  Country: KR (occurrence: KR)
  Receive Date: 20131023
  Receipt Date: 20131113
  Transmission Date: 20140711
  Serious: Yes (Other)
  Sender: FDA-Public Use
  Company Number: KR-ABBVIE-13P-090-1159598-00

PATIENT
  Sex: Female

DRUGS (2)
  1. HUMIRA [Suspect]
     Indication: RHEUMATOID ARTHRITIS
     Dates: start: 2010, end: 201304
  2. HUMIRA [Suspect]
     Dates: start: 201308

REACTIONS (2)
  - Renal cancer recurrent [Unknown]
  - Arthralgia [Unknown]
